FAERS Safety Report 13783491 (Version 1)
Quarter: 2017Q3

REPORT INFORMATION
  Report Type: Spontaneous
  Country: FR (occurrence: FR)
  Receive Date: 20170724
  Receipt Date: 20170724
  Transmission Date: 20171127
  Serious: Yes (Hospitalization)
  Sender: FDA-Public Use
  Company Number: PHHY2017FR106699

PATIENT
  Age: 60 Year
  Sex: Female

DRUGS (2)
  1. ZOMETA [Suspect]
     Active Substance: ZOLEDRONIC ACID
     Indication: BREAST CANCER
     Dosage: 1 DF, Q4WK
     Route: 042
     Dates: start: 2011, end: 201603
  2. SODIUM CLODRONATE [Suspect]
     Active Substance: CLODRONIC ACID
     Indication: BREAST CANCER
     Dosage: UNK
     Route: 048
     Dates: start: 201603, end: 20160615

REACTIONS (1)
  - Osteonecrosis of jaw [Not Recovered/Not Resolved]

NARRATIVE: CASE EVENT DATE: 201703
